FAERS Safety Report 16344053 (Version 5)
Quarter: 2022Q4

REPORT INFORMATION
  Report Type: Report from Study
  Country: DE (occurrence: DE)
  Receive Date: 20190522
  Receipt Date: 20221104
  Transmission Date: 20230113
  Serious: Yes (Other)
  Sender: FDA-Public Use
  Company Number: DE-AMGEN-DEUNI2019077675

PATIENT
  Age: 70 Year
  Sex: Male
  Weight: 92 kg

DRUGS (25)
  1. PANITUMUMAB [Suspect]
     Active Substance: PANITUMUMAB
     Indication: Colorectal cancer metastatic
     Dosage: 552 MILLIGRAM
     Route: 042
     Dates: start: 20190306
  2. LEUCOVORIN [Suspect]
     Active Substance: LEUCOVORIN
     Indication: Colorectal cancer metastatic
     Dosage: 830 MILLIGRAM
     Route: 065
     Dates: start: 20190306
  3. LEUCOVORIN [Suspect]
     Active Substance: LEUCOVORIN
     Dosage: 840 MILLIGRAM
     Route: 065
     Dates: start: 20190513
  4. LEUCOVORIN [Suspect]
     Active Substance: LEUCOVORIN
     Dosage: 820 MILLIGRAM
     Route: 065
     Dates: start: 20190814
  5. FLUOROURACIL [Suspect]
     Active Substance: FLUOROURACIL
     Indication: Colorectal cancer metastatic
     Dosage: 830 MILLIGRAM
     Route: 040
     Dates: start: 20190306
  6. FLUOROURACIL [Suspect]
     Active Substance: FLUOROURACIL
     Dosage: 4990 MILLIGRAM
     Route: 042
     Dates: start: 20190306
  7. FLUOROURACIL [Suspect]
     Active Substance: FLUOROURACIL
     Dosage: 5060 MILLIGRAM
     Route: 042
     Dates: start: 20190513
  8. FLUOROURACIL [Suspect]
     Active Substance: FLUOROURACIL
     Dosage: 5020 MILLIGRAM
     Route: 042
     Dates: start: 20190527
  9. FLUOROURACIL [Suspect]
     Active Substance: FLUOROURACIL
     Dosage: 4940 MILLIGRAM
     Route: 042
     Dates: start: 20190814
  10. FLUOROURACIL [Suspect]
     Active Substance: FLUOROURACIL
     Dosage: 4970 MILLIGRAM
     Route: 042
     Dates: start: 20190925
  11. IRINOTECAN [Suspect]
     Active Substance: IRINOTECAN
     Indication: Colorectal cancer metastatic
     Dosage: 374 MILLIGRAM
     Route: 065
     Dates: start: 20190306
  12. IRINOTECAN [Suspect]
     Active Substance: IRINOTECAN
     Dosage: 380 MILLIGRAM
     Route: 065
     Dates: start: 20190513
  13. IRINOTECAN [Suspect]
     Active Substance: IRINOTECAN
     Dosage: 376 MILLIGRAM
     Route: 065
     Dates: start: 20190527
  14. IRINOTECAN [Suspect]
     Active Substance: IRINOTECAN
     Dosage: 371 MILLIGRAM
     Route: 065
     Dates: start: 20190814
  15. IRINOTECAN [Suspect]
     Active Substance: IRINOTECAN
     Dosage: 373 MILLIGRAM
     Route: 065
     Dates: start: 20190925
  16. ATROPINE [Concomitant]
     Active Substance: ATROPINE
     Indication: Prophylaxis
     Dosage: 0.25 MILLIGRAM, PER CYCLE
     Route: 058
     Dates: start: 20190306, end: 20190925
  17. DEXAMETHASONE [Concomitant]
     Active Substance: DEXAMETHASONE
     Indication: Prophylaxis
     Dosage: 8 MILLIGRAM, PER CYCLE
     Dates: start: 20190306, end: 20190927
  18. GRANISETRON [Concomitant]
     Active Substance: GRANISETRON
     Indication: Prophylaxis
     Dosage: 1-4 MILLIGRAM, PER CYCLE
     Dates: start: 20190306, end: 20190927
  19. LITHIUM CARBONATE [Concomitant]
     Active Substance: LITHIUM CARBONATE
     Indication: Bipolar disorder
     Dosage: 450 MILLIGRAM, BID
     Route: 048
     Dates: start: 1989
  20. PANTOZOL [Concomitant]
     Active Substance: PANTOPRAZOLE SODIUM
     Indication: Prophylaxis
     Dosage: 40 MILLIGRAM, QD
     Route: 048
     Dates: start: 201601
  21. ESIDRIX [Concomitant]
     Active Substance: HYDROCHLOROTHIAZIDE
     Indication: Oedema
     Dosage: 25 MILLIGRAM, QD
     Route: 048
     Dates: start: 20190402, end: 201905
  22. APREPITANT [Concomitant]
     Active Substance: APREPITANT
     Indication: Prophylaxis
     Dosage: 150 MILLIGRAM, PER CYCLE
     Route: 042
     Dates: start: 20190306, end: 20190402
  23. IODINE [Concomitant]
     Active Substance: IODINE
     Indication: Hypothyroidism
     Dosage: 200 MICROGRAM, QD
     Route: 048
     Dates: start: 1989, end: 201905
  24. ACETAMINOPHEN [Concomitant]
     Active Substance: ACETAMINOPHEN
     Indication: Pain
     Dosage: 500 MILLIGRAM, AS NECESSARY
     Route: 048
     Dates: start: 201902, end: 2019
  25. NOVALGIN (METAMIZOLE SODIUM) [Concomitant]
     Active Substance: METAMIZOLE SODIUM
     Indication: Pain
     Dosage: 500 MILLIGRAM, AS NECESSARY
     Route: 048
     Dates: start: 201902, end: 2019

REACTIONS (1)
  - Subcutaneous abscess [Recovered/Resolved]

NARRATIVE: CASE EVENT DATE: 20190407
